FAERS Safety Report 25222406 (Version 2)
Quarter: 2025Q2

REPORT INFORMATION
  Report Type: Report from Study
  Country: US (occurrence: US)
  Receive Date: 20250421
  Receipt Date: 20250521
  Transmission Date: 20250717
  Serious: Yes (Hospitalization)
  Sender: EISAI
  Company Number: US-Eisai-EC-2025-187580

PATIENT
  Age: 69 Year
  Sex: Female

DRUGS (2)
  1. LENVIMA [Suspect]
     Active Substance: LENVATINIB
     Indication: Renal cell carcinoma
     Dates: start: 20250401, end: 202504
  2. LENVIMA [Suspect]
     Active Substance: LENVATINIB
     Dates: start: 20250508

REACTIONS (8)
  - Dyspnoea [Recovering/Resolving]
  - Nausea [Unknown]
  - Vomiting [Recovering/Resolving]
  - Myalgia [Recovering/Resolving]
  - Gastrointestinal ulcer haemorrhage [Unknown]
  - Anxiety [Unknown]
  - Insomnia [Unknown]
  - Decreased appetite [Unknown]

NARRATIVE: CASE EVENT DATE: 20250101
